FAERS Safety Report 8679644 (Version 5)
Quarter: 2013Q1

REPORT INFORMATION
  Report Type: Report from Study
  Country: BR (occurrence: BR)
  Receive Date: 20120724
  Receipt Date: 20130215
  Transmission Date: 20140127
  Serious: Yes (Death, Hospitalization)
  Sender: FDA-Public Use
  Company Number: BR-ELI_LILLY_AND_COMPANY-BR201207005022

PATIENT
  Age: 62 Year
  Sex: Male
  Weight: 60 kg

DRUGS (14)
  1. PEMETREXED [Suspect]
     Indication: NON-SMALL CELL LUNG CANCER
     Dosage: 500 MG/M2, UNK
     Route: 042
     Dates: start: 20120503
  2. CISPLATIN [Suspect]
     Indication: NON-SMALL CELL LUNG CANCER
     Dosage: 75 MG/M2, UNK
     Route: 042
     Dates: start: 20120503
  3. FOLIC ACID [Concomitant]
     Indication: PROPHYLAXIS
     Dosage: UNK
     Dates: start: 20120426, end: 20120712
  4. VITAMIN B12 [Concomitant]
     Indication: PROPHYLAXIS
     Dosage: UNK
     Dates: start: 20120426, end: 20120703
  5. DEXAMETHASONE [Concomitant]
     Indication: PROPHYLAXIS
     Dosage: UNK
     Dates: start: 20120702, end: 20120704
  6. PARACETAMOL [Concomitant]
     Indication: PAIN
     Dosage: UNK
     Dates: start: 20120503, end: 20120712
  7. AMIODARONE [Concomitant]
     Indication: ARRHYTHMIA
     Dosage: UNK
     Dates: start: 201201, end: 20120712
  8. OMEPRAZOLE [Concomitant]
     Indication: PROPHYLAXIS
     Dosage: UNK
     Dates: start: 201202, end: 20120712
  9. METOCLOPRAMIDE [Concomitant]
     Indication: NAUSEA
     Dosage: UNK
     Dates: start: 20120511, end: 20120513
  10. LACTULOSE [Concomitant]
     Indication: CONSTIPATION
     Dosage: UNK
     Dates: start: 20120525, end: 20120712
  11. PREDNISONE [Concomitant]
     Indication: CHRONIC OBSTRUCTIVE PULMONARY DISEASE
     Dosage: UNK
     Dates: start: 20120207, end: 20120618
  12. BEROTEC [Concomitant]
     Indication: CHRONIC OBSTRUCTIVE PULMONARY DISEASE
     Dosage: UNK
     Dates: start: 20120704, end: 20120712
  13. ATROVENT [Concomitant]
     Indication: CHRONIC OBSTRUCTIVE PULMONARY DISEASE
     Dosage: UNK
     Dates: start: 20120704, end: 20120712
  14. TEOFILINA [Concomitant]
     Indication: CHRONIC OBSTRUCTIVE PULMONARY DISEASE
     Dosage: UNK
     Dates: start: 20120619, end: 20120712

REACTIONS (3)
  - Septic shock [Fatal]
  - Acute respiratory failure [Not Recovered/Not Resolved]
  - Febrile neutropenia [Not Recovered/Not Resolved]
